FAERS Safety Report 10200082 (Version 1)
Quarter: 2014Q2

REPORT INFORMATION
  Report Type: Spontaneous
  Country: US (occurrence: US)
  Receive Date: 20140527
  Receipt Date: 20140527
  Transmission Date: 20141212
  Serious: No
  Sender: FDA-Public Use
  Company Number: US-NOVEN-14US009251

PATIENT
  Age: 22 Year
  Sex: Female

DRUGS (2)
  1. DAYTRANA [Suspect]
     Indication: ATTENTION DEFICIT/HYPERACTIVITY DISORDER
     Dosage: 10 MG, UNK
     Route: 062
     Dates: start: 201403
  2. DAYTRANA [Suspect]
     Dosage: 15 MG, UNK
     Route: 062
     Dates: start: 201312

REACTIONS (9)
  - Muscle twitching [Recovered/Resolved]
  - Crying [Recovered/Resolved]
  - Mood swings [Recovered/Resolved]
  - Application site irritation [Recovered/Resolved]
  - Application site pain [Recovered/Resolved]
  - Expired product administered [Recovered/Resolved]
  - Drug prescribing error [Not Recovered/Not Resolved]
  - Off label use [Not Recovered/Not Resolved]
  - Product quality issue [Recovered/Resolved]
